FAERS Safety Report 17353905 (Version 1)
Quarter: 2020Q1

REPORT INFORMATION
  Report Type: Spontaneous
  Country: FR (occurrence: FR)
  Receive Date: 20200131
  Receipt Date: 20200131
  Transmission Date: 20200409
  Serious: Yes (Hospitalization)
  Sender: FDA-Public Use
  Company Number: FR-TEVA-2020-FR-1178295

PATIENT
  Age: 79 Year
  Sex: Female

DRUGS (4)
  1. TRAMADOL BASE [Suspect]
     Active Substance: TRAMADOL
     Indication: NECK PAIN
     Dosage: NOT KNOWN
     Route: 048
     Dates: start: 201912
  2. TERALITHE [Suspect]
     Active Substance: LITHIUM CARBONATE
     Indication: DEPRESSION
     Dosage: 400 MG
     Route: 048
     Dates: end: 20191225
  3. EUTHYRAL, COMPRIM? S?CABLE [Suspect]
     Active Substance: LEVOTHYROXINE SODIUM\LIOTHYRONINE SODIUM
     Indication: HYPOTHYROIDISM
     Dosage: NON PR?CIS?E
     Route: 048
     Dates: end: 20191225
  4. ANAFRANIL [Suspect]
     Active Substance: CLOMIPRAMINE HYDROCHLORIDE
     Indication: DEPRESSION
     Route: 048
     Dates: end: 20191225

REACTIONS (3)
  - Psychomotor skills impaired [Recovered/Resolved]
  - Confusional state [Not Recovered/Not Resolved]
  - Speech disorder [Recovered/Resolved]

NARRATIVE: CASE EVENT DATE: 20191230
